FAERS Safety Report 18364752 (Version 2)
Quarter: 2021Q3

REPORT INFORMATION
  Report Type: Spontaneous
  Country: US (occurrence: US)
  Receive Date: 20201009
  Receipt Date: 20210921
  Transmission Date: 20211014
  Serious: No
  Sender: FDA-Public Use
  Company Number: US-MYLANLABS-2020M1075796

PATIENT
  Sex: Male
  Weight: 136 kg

DRUGS (1)
  1. LIDOCAINE PATCH [Suspect]
     Active Substance: LIDOCAINE
     Indication: BACK PAIN
     Dosage: 5 PERCENT, 3XW
     Route: 003

REACTIONS (4)
  - Off label use [Not Recovered/Not Resolved]
  - Product quality issue [Unknown]
  - Product adhesion issue [Not Recovered/Not Resolved]
  - Expired product administered [Not Recovered/Not Resolved]
